FAERS Safety Report 15308212 (Version 1)
Quarter: 2018Q3

REPORT INFORMATION
  Report Type: Spontaneous
  Country: PT (occurrence: PT)
  Receive Date: 20180822
  Receipt Date: 20180822
  Transmission Date: 20181010
  Serious: Yes (Death, Hospitalization, Other)
  Sender: FDA-Public Use
  Company Number: PT-PFM-2018-09424

PATIENT

DRUGS (2)
  1. VINORELBINE [Suspect]
     Active Substance: VINORELBINE\VINORELBINE TARTRATE
     Dosage: FIRST CYCLE
     Route: 065
     Dates: start: 201408
  2. VINORELBINE [Suspect]
     Active Substance: VINORELBINE\VINORELBINE TARTRATE
     Indication: BREAST CANCER
     Dosage: SECOND CYCLE
     Route: 065
     Dates: start: 201409

REACTIONS (4)
  - Acute respiratory distress syndrome [Recovered/Resolved]
  - Nosocomial infection [Fatal]
  - Respiratory tract infection [Unknown]
  - Hypoxia [Unknown]
